FAERS Safety Report 7554953-3 (Version None)
Quarter: 2011Q2

REPORT INFORMATION
  Report Type: 
  Country: None (occurrence: None)
  Receive Date: 20110617
  Receipt Date: 20110602
  Transmission Date: 20111010
  Serious: Yes (Hospitalization)
  Sender: FDA-Public Use
  Company Number: US-ACTELION-A-NJ2011-49817

PATIENT

DRUGS (2)
  1. VENTAVIS [Suspect]
     Indication: PULMONARY ARTERIAL HYPERTENSION
     Dosage: UNK
     Route: 055
     Dates: start: 20110607
  2. VENTAVIS [Suspect]
     Dosage: UNK
     Route: 055
     Dates: start: 20110601, end: 20110602

REACTIONS (2)
  - HYPOXIA [None]
  - VENTRICULAR EXTRASYSTOLES [None]
